FAERS Safety Report 9726062 (Version 3)
Quarter: 2014Q3

REPORT INFORMATION
  Report Type: Spontaneous
  Country: US (occurrence: US)
  Receive Date: 20131203
  Receipt Date: 20140915
  Transmission Date: 20150326
  Serious: Yes (Other)
  Sender: FDA-Public Use
  Company Number: US-BAYER-2013-143738

PATIENT
  Age: 39 Year
  Sex: Female
  Weight: 82 kg

DRUGS (3)
  1. AYGESTIN [Concomitant]
     Active Substance: NORETHINDRONE ACETATE
  2. PROCARDIA XL [Concomitant]
     Active Substance: NIFEDIPINE
  3. MIRENA [Suspect]
     Active Substance: LEVONORGESTREL
     Indication: CONTRACEPTION
     Dosage: 20 MCG/24HR, CONT
     Route: 015
     Dates: start: 20110614, end: 20120216

REACTIONS (10)
  - Device difficult to use [None]
  - Emotional distress [None]
  - Fear [None]
  - Bladder perforation [None]
  - Device dislocation [None]
  - Pain [None]
  - Post procedural haemorrhage [None]
  - Injury [None]
  - Uterine haemorrhage [None]
  - Complication of device removal [None]

NARRATIVE: CASE EVENT DATE: 201106
